FAERS Safety Report 7215026-2 (Version None)
Quarter: 2011Q1

REPORT INFORMATION
  Report Type: 
  Country: None (occurrence: None)
  Receive Date: 20110107
  Receipt Date: 20100907
  Transmission Date: 20110831
  Serious: No
  Sender: FDA-Public Use
  Company Number: A0870630A

PATIENT
  Age: 78 Year
  Sex: Female

DRUGS (7)
  1. LOVAZA [Suspect]
     Dosage: 2CAP TWICE PER DAY
     Route: 048
     Dates: start: 20090101
  2. UNKNOWN DRUG [Concomitant]
  3. THYROID [Concomitant]
  4. EVISTA [Concomitant]
  5. ASPIRIN [Concomitant]
  6. CALCIUM SUPPLEMENTS [Concomitant]
  7. CYMBALTA [Concomitant]

REACTIONS (5)
  - DYSGEUSIA [None]
  - DYSPHAGIA [None]
  - PRODUCT QUALITY ISSUE [None]
  - ERUCTATION [None]
  - VOMITING [None]
